FAERS Safety Report 5477502-2 (Version None)
Quarter: 2007Q4

REPORT INFORMATION
  Report Type: 
  Country: None (occurrence: None)
  Receive Date: 20071004
  Receipt Date: 20070925
  Transmission Date: 20080405
  Serious: Yes (Hospitalization, Other)
  Sender: FDA-Public Use
  Company Number: US-ABBOTT-07P-163-0418585-00

PATIENT
  Sex: Female
  Weight: 70.824 kg

DRUGS (7)
  1. HUMIRA [Suspect]
     Indication: CROHN'S DISEASE
     Route: 058
     Dates: start: 20070619, end: 20070727
  2. HUMIRA [Suspect]
     Dates: start: 20070522, end: 20070522
  3. HUMIRA [Suspect]
     Dates: start: 20070605, end: 20070605
  4. HUMIRA [Suspect]
     Dates: start: 20070821, end: 20070908
  5. HUMIRA [Suspect]
     Dates: start: 20070917
  6. PREDNISONE [Concomitant]
     Indication: DRUG USE FOR UNKNOWN INDICATION
  7. IRON [Concomitant]
     Indication: DRUG USE FOR UNKNOWN INDICATION
     Route: 050

REACTIONS (8)
  - ANAEMIA [None]
  - CROHN'S DISEASE [None]
  - MALAISE [None]
  - MUSCULAR WEAKNESS [None]
  - MYALGIA [None]
  - PAIN IN EXTREMITY [None]
  - PARAESTHESIA [None]
  - RESTLESS LEGS SYNDROME [None]
